FAERS Safety Report 24333597 (Version 1)
Quarter: 2024Q3

REPORT INFORMATION
  Report Type: Spontaneous
  Country: US (occurrence: None)
  Receive Date: 20240918
  Receipt Date: 20240918
  Transmission Date: 20241017
  Serious: No
  Sender: Public
  Company Number: None

PATIENT
  Age: 77 Year
  Sex: Female

DRUGS (1)
  1. ODOMZO [Suspect]
     Active Substance: SONIDEGIB
     Indication: Basal cell carcinoma
     Dosage: OTHER QUANTITY : 1 CAPSULE BY MOUTH ON EMPTY STOMACH;?FREQUENCY : DAILY;?
     Route: 048
     Dates: start: 202404

REACTIONS (1)
  - COVID-19 [None]
